FAERS Safety Report 13249267 (Version 1)
Quarter: 2017Q1

REPORT INFORMATION
  Report Type: Spontaneous
  Country: US (occurrence: US)
  Receive Date: 20170218
  Receipt Date: 20170218
  Transmission Date: 20170428
  Serious: No
  Sender: FDA-Public Use
  Company Number: US-ALLERGAN-1682071US

PATIENT
  Sex: Female
  Weight: 43.31 kg

DRUGS (4)
  1. LORAZEPAM. [Concomitant]
     Active Substance: LORAZEPAM
     Indication: ANXIETY
     Dosage: UNK
     Route: 048
  2. PROZAC [Concomitant]
     Active Substance: FLUOXETINE HYDROCHLORIDE
     Indication: ANXIETY
     Dosage: UNK
     Route: 048
  3. RESTASIS [Suspect]
     Active Substance: CYCLOSPORINE
     Indication: EYE IRRITATION
  4. RESTASIS [Suspect]
     Active Substance: CYCLOSPORINE
     Indication: LACRIMATION INCREASED
     Dosage: 2 GTT, BID
     Route: 047
     Dates: start: 201610

REACTIONS (6)
  - Asthenia [Not Recovered/Not Resolved]
  - Nervousness [Not Recovered/Not Resolved]
  - Eye pain [Not Recovered/Not Resolved]
  - Visual impairment [Not Recovered/Not Resolved]
  - Lacrimation increased [Not Recovered/Not Resolved]
  - Eye irritation [Not Recovered/Not Resolved]

NARRATIVE: CASE EVENT DATE: 2016
